FAERS Safety Report 24239459 (Version 1)
Quarter: 2024Q3

REPORT INFORMATION
  Report Type: Spontaneous
  Country: US (occurrence: US)
  Receive Date: 20240822
  Receipt Date: 20240822
  Transmission Date: 20241016
  Serious: No
  Sender: AVADEL CNS PHARMA
  Company Number: US-AVADEL CNS PHARMACEUTICALS, LLC-2024AVA01174

PATIENT
  Age: 47 Year
  Sex: Female

DRUGS (12)
  1. LUMRYZ [Suspect]
     Active Substance: SODIUM OXYBATE
     Indication: Narcolepsy
     Dosage: 7.5 G, ONCE NIGHTLY
     Dates: start: 202401
  2. FLONASE ALLERGY RELIEF [Concomitant]
     Active Substance: FLUTICASONE PROPIONATE
  3. CEQUA [Concomitant]
     Active Substance: CYCLOSPORINE
  4. VITAMIN D3 [Concomitant]
     Active Substance: CHOLECALCIFEROL
  5. CLARITIN-D NOS [Concomitant]
     Active Substance: LORATADINE\PSEUDOEPHEDRINE SULFATE
     Dosage: UNK, 12 HOUR
  6. VITAMINS [Concomitant]
     Active Substance: VITAMINS
  7. MAXALT-MLT [Concomitant]
     Active Substance: RIZATRIPTAN BENZOATE
  8. INDOMETHACIN [Concomitant]
     Active Substance: INDOMETHACIN
  9. EPINEPHRINE [Concomitant]
     Active Substance: EPINEPHRINE
  10. CYANOCOBALAMIN [Concomitant]
     Active Substance: CYANOCOBALAMIN
  11. ACYCLOVIR [Concomitant]
     Active Substance: ACYCLOVIR
  12. SUNOSI [Concomitant]
     Active Substance: SOLRIAMFETOL

REACTIONS (1)
  - Migraine [Not Recovered/Not Resolved]

NARRATIVE: CASE EVENT DATE: 20240601
